FAERS Safety Report 11573097 (Version 3)
Quarter: 2015Q4

REPORT INFORMATION
  Report Type: Spontaneous
  Country: US (occurrence: US)
  Receive Date: 20150916
  Receipt Date: 20151104
  Transmission Date: 20160304
  Serious: No
  Sender: FDA-Public Use
  Company Number: US-ELI_LILLY_AND_COMPANY-US200910006454

PATIENT
  Sex: Female
  Weight: 68.03 kg

DRUGS (3)
  1. FORTEO [Suspect]
     Active Substance: TERIPARATIDE
     Indication: OSTEOPOROSIS
     Dosage: 20 UG, DAILY (1/D)
     Dates: start: 200910
  2. FORTEO [Suspect]
     Active Substance: TERIPARATIDE
     Dosage: 20 UG, QD
  3. FORTEO [Suspect]
     Active Substance: TERIPARATIDE
     Dosage: 20 UG, QD
     Route: 065

REACTIONS (13)
  - Vision blurred [Unknown]
  - Pain in extremity [Unknown]
  - Weight increased [Unknown]
  - Bone pain [Unknown]
  - Limb discomfort [Unknown]
  - Dry eye [Unknown]
  - Injection site bruising [Unknown]
  - Eye pain [Unknown]
  - Eyelid function disorder [Unknown]
  - Drug dose omission [Unknown]
  - Pain [Unknown]
  - Osteoarthritis [Unknown]
  - Pain in extremity [Not Recovered/Not Resolved]

NARRATIVE: CASE EVENT DATE: 2009
